FAERS Safety Report 6472764-7 (Version None)
Quarter: 2009Q4

REPORT INFORMATION
  Report Type: 
  Country: None (occurrence: None)
  Receive Date: 20091201
  Receipt Date: 20091120
  Transmission Date: 20100525
  Serious: Yes (Hospitalization)
  Sender: FDA-Public Use
  Company Number: GB-1171670

PATIENT
  Age: 16 Year
  Sex: Female

DRUGS (4)
  1. TROPICAMIDE [Suspect]
     Indication: FUNDOSCOPY
     Dosage: ONE TIME DOSE OPHTHALMIC
     Route: 047
     Dates: start: 20090930, end: 20090930
  2. INSULIN LISPRO (INSULIN LISPRO) [Concomitant]
  3. LEVOTHYROXINE SODIUM [Concomitant]
  4. PHENYLEPHRINE HCL (PHENYLEPHRINE HYDROCHLORIDE) [Concomitant]

REACTIONS (5)
  - DIABETIC KETOACIDOSIS [None]
  - HEADACHE [None]
  - NAUSEA [None]
  - VOMITING [None]
  - WHITE BLOOD CELL COUNT INCREASED [None]
